FAERS Safety Report 8071940-X (Version None)
Quarter: 2012Q1

REPORT INFORMATION
  Report Type: 
  Country: None (occurrence: None)
  Receive Date: 20120119
  Receipt Date: 20120103
  Transmission Date: 20120608
  Serious: Yes (Hospitalization)
  Sender: FDA-Public Use
  Company Number: COL_10317_2011

PATIENT
  Sex: Male
  Weight: 76 kg

DRUGS (4)
  1. MEFENAMIC ACID [Concomitant]
  2. CHLORHEXIDINE GLUCONATE [Suspect]
     Indication: GINGIVITIS
     Dosage: (10 MG QD, 1 CAPFUL ORAL)
     Route: 048
     Dates: start: 20111105, end: 20111106
  3. CHLORHEXIDINE GLUCONATE [Suspect]
     Indication: POSTOPERATIVE WOUND INFECTION
     Dosage: (10 MG QD, 1 CAPFUL ORAL)
     Route: 048
     Dates: start: 20111105, end: 20111106
  4. CHLORHEXIDINE GLUCONATE [Suspect]
     Indication: MUCOSAL INFLAMMATION
     Dosage: (10 MG QD, 1 CAPFUL ORAL)
     Route: 048
     Dates: start: 20111105, end: 20111106

REACTIONS (10)
  - APHASIA [None]
  - HYPOPHAGIA [None]
  - INSOMNIA [None]
  - THROAT TIGHTNESS [None]
  - PAIN [None]
  - TRISMUS [None]
  - PHARYNGEAL ABSCESS [None]
  - PHARYNGEAL HAEMORRHAGE [None]
  - DYSPHAGIA [None]
  - PRODUCT QUALITY ISSUE [None]
